FAERS Safety Report 6095422-X (Version None)
Quarter: 2009Q1

REPORT INFORMATION
  Report Type: 
  Country: None (occurrence: None)
  Receive Date: 20090227
  Receipt Date: 20080331
  Transmission Date: 20090719
  Serious: No
  Sender: FDA-Public Use
  Company Number: A0718336A

PATIENT
  Age: 32 Year
  Sex: Female

DRUGS (3)
  1. LAMICTAL [Suspect]
     Indication: BIPOLAR DISORDER
     Dosage: 200MG PER DAY
     Route: 048
     Dates: start: 20070101
  2. VITAMINS [Concomitant]
  3. ATIVAN [Concomitant]

REACTIONS (5)
  - ALOPECIA [None]
  - DRY SKIN [None]
  - ECZEMA [None]
  - PRURITUS [None]
  - RASH PAPULAR [None]
